FAERS Safety Report 5763618-X (Version None)
Quarter: 2008Q2

REPORT INFORMATION
  Report Type: 
  Country: None (occurrence: None)
  Receive Date: 20080610
  Receipt Date: 20080602
  Transmission Date: 20081010
  Serious: Yes (Death, Other)
  Sender: FDA-Public Use
  Company Number: PHHY2008BR09726

PATIENT
  Age: 80 Year
  Sex: Male

DRUGS (1)
  1. APRESOLINE [Suspect]
     Dosage: 25 MG
     Route: 048

REACTIONS (5)
  - CARDIAC ASSISTANCE DEVICE USER [None]
  - CARDIAC DISORDER [None]
  - CEREBRAL ISCHAEMIA [None]
  - DEATH [None]
  - HEPATITIS [None]
